FAERS Safety Report 14135683 (Version 1)
Quarter: 2017Q4

REPORT INFORMATION
  Report Type: Spontaneous
  Country: US (occurrence: None)
  Receive Date: 20171027
  Receipt Date: 20171027
  Transmission Date: 20180321
  Serious: Yes (Hospitalization)
  Sender: FDA-Public Use
  Company Number: None

PATIENT
  Age: 64 Year
  Sex: Female

DRUGS (14)
  1. NEUPOGEN [Suspect]
     Active Substance: FILGRASTIM
     Indication: PLASMA CELL MYELOMA
     Route: 058
     Dates: start: 20170524
  2. ASPIRIN. [Concomitant]
     Active Substance: ASPIRIN
  3. DEXAMETHASONE. [Concomitant]
     Active Substance: DEXAMETHASONE
  4. FENTANYL. [Concomitant]
     Active Substance: FENTANYL
  5. COUGH SYP [Concomitant]
  6. MONTELUKAST [Concomitant]
     Active Substance: MONTELUKAST SODIUM
  7. LORAZEPAM. [Concomitant]
     Active Substance: LORAZEPAM
  8. GABAPENTIN. [Concomitant]
     Active Substance: GABAPENTIN
  9. VALACYCLOVIR [Concomitant]
     Active Substance: VALACYCLOVIR HYDROCHLORIDE
  10. CALCIUM/D3 [Concomitant]
     Active Substance: CALCIUM\CHOLECALCIFEROL
  11. NEUPOGEN [Suspect]
     Active Substance: FILGRASTIM
     Indication: PLASMA CELL MYELOMA
     Route: 058
     Dates: start: 20170524
  12. LEVOFLOXACIN. [Concomitant]
     Active Substance: LEVOFLOXACIN
  13. CLONAZEPAM. [Concomitant]
     Active Substance: CLONAZEPAM
  14. METHADONE [Concomitant]
     Active Substance: METHADONE HYDROCHLORIDE

REACTIONS (2)
  - Pyrexia [None]
  - Pneumonia [None]

NARRATIVE: CASE EVENT DATE: 201710
